FAERS Safety Report 4678495-8 (Version None)
Quarter: 2005Q2

REPORT INFORMATION
  Report Type: 
  Country: None (occurrence: None)
  Receive Date: 20050601
  Receipt Date: 20050511
  Transmission Date: 20051028
  Serious: Yes (Death, Hospitalization)
  Sender: FDA-Public Use
  Company Number: BR-ROCHE-404558

PATIENT
  Age: 38 Year
  Sex: Male
  Weight: 82 kg

DRUGS (2)
  1. PEGASYS [Suspect]
     Indication: HEPATITIS C
     Route: 058
     Dates: start: 20050415, end: 20050515
  2. RIBAVIRIN [Suspect]
     Indication: HEPATITIS C
     Route: 048
     Dates: start: 20050415, end: 20050515

REACTIONS (7)
  - ANAEMIA [None]
  - HEPATIC FAILURE [None]
  - METABOLIC ACIDOSIS [None]
  - MULTI-ORGAN FAILURE [None]
  - PYREXIA [None]
  - RENAL FAILURE [None]
  - THROMBOCYTOPENIA [None]
